FAERS Safety Report 9722964 (Version 1)
Quarter: 2013Q4

REPORT INFORMATION
  Report Type: Spontaneous
  Country: US (occurrence: None)
  Receive Date: 20131126
  Receipt Date: 20131126
  Transmission Date: 20140711
  Serious: Yes (Other)
  Sender: FDA-Public Use
  Company Number: 2013HINOTH0254

PATIENT
  Age: 38 Year
  Sex: Female

DRUGS (3)
  1. STAVUDINE [Suspect]
     Indication: ANTIRETROVIRAL THERAPY
     Dosage: 1 COURSE, 60 TAB/CAP, ORAL
     Route: 048
  2. KALETRA, ALUVIA, LPV/R (LOPINAVIR + RITONAVIR) [Suspect]
     Indication: ANTIRETROVIRAL THERAPY
     Dosage: 1 COURSE, 2 TAB/CAP, ORAL
     Route: 048
  3. INTELENCE [Concomitant]

REACTIONS (4)
  - Abortion spontaneous [None]
  - Placenta praevia [None]
  - Maternal exposure during pregnancy [None]
  - Infection [None]
